FAERS Safety Report 4699709-4 (Version None)
Quarter: 2005Q2

REPORT INFORMATION
  Report Type: 
  Country: None (occurrence: None)
  Receive Date: 20050623
  Receipt Date: 20050607
  Transmission Date: 20051028
  Serious: Yes (Life-Threatening)
  Sender: FDA-Public Use
  Company Number: 2005FR-00009

PATIENT
  Age: 85 Year
  Sex: Female
  Weight: 55 kg

DRUGS (4)
  1. FLUOXETINE [Suspect]
     Indication: DEPRESSION
     Dosage: 20 MG, OD, ORAL
     Route: 048
     Dates: start: 20050427, end: 20050503
  2. ATENOLOL [Concomitant]
  3. BENDROFLUMETHIAZIDE  2.5 MG [Concomitant]
  4. LISINOPRIL [Concomitant]

REACTIONS (1)
  - HYPONATRAEMIA [None]
